FAERS Safety Report 19634470 (Version 1)
Quarter: 2021Q3

REPORT INFORMATION
  Report Type: Spontaneous
  Country: US (occurrence: US)
  Receive Date: 20210729
  Receipt Date: 20210729
  Transmission Date: 20211014
  Serious: No
  Sender: FDA-Public Use
  Company Number: US-PARATEK PHARMACEUTICALS, INC.-2021PTK00054

PATIENT
  Age: 65 Year
  Sex: Male

DRUGS (12)
  1. HYDROCHLOROTHIAZIDE. [Concomitant]
     Active Substance: HYDROCHLOROTHIAZIDE
  2. MULTIVITAMIN [Concomitant]
     Active Substance: VITAMINS
  3. ASPIRIN. [Concomitant]
     Active Substance: ASPIRIN
  4. NUZYRA [Suspect]
     Active Substance: OMADACYCLINE
     Indication: WOUND
     Dosage: 450 MG, ONCE
     Route: 048
     Dates: start: 20210426, end: 20210426
  5. LISINOPRIL. [Concomitant]
     Active Substance: LISINOPRIL
  6. FISH OIL [Concomitant]
     Active Substance: FISH OIL
  7. XARELTO [Concomitant]
     Active Substance: RIVAROXABAN
  8. LYRICA [Concomitant]
     Active Substance: PREGABALIN
  9. LANTUS [Concomitant]
     Active Substance: INSULIN GLARGINE
  10. LORAZEPAM. [Concomitant]
     Active Substance: LORAZEPAM
  11. NORCO [Concomitant]
     Active Substance: ACETAMINOPHEN\HYDROCODONE BITARTRATE
  12. VITAMIN D3 [Concomitant]
     Active Substance: CHOLECALCIFEROL

REACTIONS (3)
  - Diarrhoea [Unknown]
  - Malaise [Unknown]
  - Therapy cessation [Not Recovered/Not Resolved]

NARRATIVE: CASE EVENT DATE: 20210426
